FAERS Safety Report 10157434 (Version 1)
Quarter: 2014Q2

REPORT INFORMATION
  Report Type: Spontaneous
  Country: US (occurrence: US)
  Receive Date: 20140507
  Receipt Date: 20140507
  Transmission Date: 20141212
  Serious: Yes (Other)
  Sender: FDA-Public Use
  Company Number: US-JNJFOC-20140417207

PATIENT
  Sex: 0

DRUGS (5)
  1. DOXORUBICIN [Suspect]
     Indication: BREAST CANCER
     Route: 042
  2. CYCLOPHOSPHAMIDE [Suspect]
     Indication: BREAST CANCER
     Route: 065
  3. FOSAPREPITANT [Suspect]
     Indication: PROPHYLAXIS OF NAUSEA AND VOMITING
     Dosage: ADMINISTERED OVER 20 TO 30 MINUTES AT A CONCENTRATIONOF 1 MG/ML.
     Route: 042
  4. APREPITANT [Suspect]
     Indication: PROPHYLAXIS OF NAUSEA AND VOMITING
     Route: 048
  5. CORTICOSTEROID (UNSPECIFIED) [Concomitant]
     Route: 065

REACTIONS (3)
  - Extravasation [Unknown]
  - Vein disorder [Unknown]
  - Infusion site erythema [Unknown]
